FAERS Safety Report 20535754 (Version 1)
Quarter: 2022Q1

REPORT INFORMATION
  Report Type: Spontaneous
  Country: CA (occurrence: CA)
  Receive Date: 20220302
  Receipt Date: 20220302
  Transmission Date: 20220424
  Serious: Yes (Other)
  Sender: FDA-Public Use
  Company Number: CA-JNJFOC-20211109063

PATIENT
  Age: 37 Year
  Sex: Female
  Weight: 68 kg

DRUGS (6)
  1. REMICADE [Suspect]
     Active Substance: INFLIXIMAB
     Indication: Colitis ulcerative
     Route: 042
  2. CALCIUM [Concomitant]
     Active Substance: CALCIUM
  3. NOVOGESIC [NIMESULIDE] [Concomitant]
  4. ATIVAN [Concomitant]
     Active Substance: LORAZEPAM
     Route: 065
  5. PANTOPRAZOLE [Concomitant]
     Active Substance: PANTOPRAZOLE
  6. VITAL [MINERALS NOS;VITAMINS NOS] [Concomitant]

REACTIONS (5)
  - Abortion spontaneous [Recovered/Resolved]
  - Feeling abnormal [Recovered/Resolved]
  - Gastroenteritis viral [Recovered/Resolved]
  - Off label use [Recovered/Resolved]
  - Exposure during pregnancy [Recovered/Resolved]
